FAERS Safety Report 5598524-7 (Version None)
Quarter: 2008Q1

REPORT INFORMATION
  Report Type: 
  Country: None (occurrence: None)
  Receive Date: 20080122
  Receipt Date: 20080115
  Transmission Date: 20080703
  Serious: Yes (Hospitalization, Other)
  Sender: FDA-Public Use
  Company Number: NL-JNJFOC-20080103623

PATIENT
  Sex: Female

DRUGS (15)
  1. REMICADE [Suspect]
     Route: 042
  2. REMICADE [Suspect]
     Dosage: INFUSION 33-72 10AUG04-31JUL07
     Route: 042
  3. REMICADE [Suspect]
     Dosage: INFUSION 33-72 10AUG04-31JUL07
     Route: 042
  4. REMICADE [Suspect]
     Dosage: INFUSION 33-72 10AUG04-31JUL07
     Route: 042
  5. REMICADE [Suspect]
     Dosage: INFUSION 33-72 10AUG04-31JUL07
     Route: 042
  6. REMICADE [Suspect]
     Dosage: INFUSION 10-32: 11SEP02-13JUL04
     Route: 042
  7. REMICADE [Suspect]
     Indication: CROHN'S DISEASE
     Dosage: 0-9 INFUSIONS:24JUL01-30JUL02
     Route: 042
  8. METHOTREXATE [Concomitant]
  9. BUDENOFALK [Concomitant]
  10. LEVOMEPROMAZINE [Concomitant]
  11. PULMICORT [Concomitant]
  12. ACENOCOUMAROL [Concomitant]
  13. OMEPRAZOLE [Concomitant]
  14. DURAGESIC-100 [Concomitant]
  15. IMURAN [Concomitant]

REACTIONS (2)
  - INTESTINAL FISTULA INFECTION [None]
  - MALIGNANT MELANOMA [None]
